FAERS Safety Report 6203318-5 (Version None)
Quarter: 2009Q2

REPORT INFORMATION
  Report Type: 
  Country: None (occurrence: None)
  Receive Date: 20090527
  Receipt Date: 20090519
  Transmission Date: 20091009
  Serious: Yes (Death, Hospitalization)
  Sender: FDA-Public Use
  Company Number: PHHY2009JP19506

PATIENT

DRUGS (8)
  1. ICL670A ICL+DISTAB [Suspect]
     Indication: IRON OVERLOAD
     Dosage: 1000 MG DAILY
     Route: 048
     Dates: start: 20081107, end: 20090326
  2. ICL670A ICL+DISTAB [Suspect]
     Indication: ACUTE MYELOID LEUKAEMIA
  3. MAXIPIME [Concomitant]
     Dosage: 4 G
     Route: 042
     Dates: start: 20090404, end: 20090413
  4. CIPROXAN [Concomitant]
     Dosage: 600 MG
     Route: 042
     Dates: start: 20090414, end: 20090417
  5. MEROPEN [Concomitant]
     Dosage: 1 G
     Route: 042
     Dates: start: 20090417, end: 20090422
  6. TAGAMET [Concomitant]
     Dosage: 400MG
     Route: 042
     Dates: start: 20090420, end: 20090429
  7. VFEND [Concomitant]
     Dosage: 400MG
     Route: 042
     Dates: start: 20090425, end: 20090429
  8. ITRIZOLE [Concomitant]
     Dosage: 200MG
     Route: 042
     Dates: start: 20090416, end: 20090424

REACTIONS (9)
  - ALANINE AMINOTRANSFERASE INCREASED [None]
  - ASPARTATE AMINOTRANSFERASE INCREASED [None]
  - BLOOD AMYLASE INCREASED [None]
  - BLOOD CREATININE INCREASED [None]
  - HEPATIC FUNCTION ABNORMAL [None]
  - INFECTION [None]
  - NAUSEA [None]
  - PANCYTOPENIA [None]
  - RENAL IMPAIRMENT [None]
